FAERS Safety Report 26096020 (Version 2)
Quarter: 2025Q4

REPORT INFORMATION
  Report Type: Report from Study
  Country: IL (occurrence: IL)
  Receive Date: 20251127
  Receipt Date: 20251214
  Transmission Date: 20260118
  Serious: Yes (Hospitalization)
  Sender: ABBVIE
  Company Number: IL-ABBVIE-6561436

PATIENT
  Age: 70 Year
  Sex: Male

DRUGS (8)
  1. CARBIDOPA\LEVODOPA [Suspect]
     Active Substance: CARBIDOPA\LEVODOPA
     Indication: Parkinson^s disease
     Route: 050
     Dates: start: 20250312, end: 2025
  2. CARBIDOPA\LEVODOPA [Suspect]
     Active Substance: CARBIDOPA\LEVODOPA
     Dosage: MORNING DOSAGE(ML): 6.0, ADDITIONAL TUBE FILING (ML): 3.0, CONTINUOUS DOSAGE (ML/H): 3.2, EXTRA D...
     Route: 050
     Dates: start: 20250611, end: 20250611
  3. CARBIDOPA\LEVODOPA [Suspect]
     Active Substance: CARBIDOPA\LEVODOPA
     Dosage: MORNING DOSAGE(ML): 6.0, ADDITIONAL TUBE FILING (ML): 3.0, CONTINUOUS DOSAGE (ML/H): 3.0, EXTRA D...
     Route: 050
     Dates: start: 20250415, end: 20250415
  4. CARBIDOPA\LEVODOPA [Suspect]
     Active Substance: CARBIDOPA\LEVODOPA
     Dosage: MORNING DOSAGE(ML): 6.0, ADDITIONAL TUBE FILING (ML): 3.0, CONTINUOUS DOSAGE (ML/H): 3.2, EXTRA D...
     Route: 050
     Dates: start: 20250818, end: 20250818
  5. CARBIDOPA\LEVODOPA [Suspect]
     Active Substance: CARBIDOPA\LEVODOPA
     Dosage: MORNING DOSAGE(ML): 6.0, ADDITIONAL TUBE FILING (ML): 3.0, CONTINUOUS DOSAGE (ML/H): 3.2, EXTRA D...
     Route: 050
     Dates: start: 20250914, end: 20250914
  6. CARBIDOPA\LEVODOPA [Suspect]
     Active Substance: CARBIDOPA\LEVODOPA
     Route: 050
     Dates: start: 2025
  7. CIPRALEX [Concomitant]
     Active Substance: ESCITALOPRAM OXALATE
     Indication: Product used for unknown indication
  8. ASPIRIN [Concomitant]
     Active Substance: ASPIRIN
     Indication: Product used for unknown indication
     Dosage: FORM STRENGTH75 MG PREVENTATIVE

REACTIONS (2)
  - Unresponsive to stimuli [Recovering/Resolving]
  - Urinary retention [Recovering/Resolving]

NARRATIVE: CASE EVENT DATE: 20250101
